FAERS Safety Report 12208331 (Version 1)
Quarter: 2016Q1

REPORT INFORMATION
  Report Type: Spontaneous
  Country: US (occurrence: US)
  Receive Date: 20160324
  Receipt Date: 20160324
  Transmission Date: 20160526
  Serious: Yes (Other)
  Sender: FDA-Public Use
  Company Number: US-BAYER-2016-053573

PATIENT
  Age: 15 Year
  Sex: Female

DRUGS (1)
  1. ACETYLSALICYLIC ACID({=100 MG) [Suspect]
     Active Substance: ASPIRIN
     Indication: SELF INJURIOUS BEHAVIOUR
     Dosage: 65 G, ONCE
     Route: 048

REACTIONS (3)
  - Fanconi syndrome acquired [None]
  - Acute kidney injury [None]
  - Intentional overdose [None]
